FAERS Safety Report 6185866-X (Version None)
Quarter: 2009Q2

REPORT INFORMATION
  Report Type: 
  Country: None (occurrence: None)
  Receive Date: 20090511
  Receipt Date: 20090501
  Transmission Date: 20091009
  Serious: Yes (Hospitalization)
  Sender: FDA-Public Use
  Company Number: A0782974A

PATIENT
  Age: 48 Year
  Sex: Male
  Weight: 109.1 kg

DRUGS (2)
  1. AVANDAMET [Suspect]
     Indication: DIABETES MELLITUS
     Route: 048
     Dates: start: 20060826, end: 20070505
  2. METFORMIN HCL [Concomitant]

REACTIONS (6)
  - ACUTE CORONARY SYNDROME [None]
  - ACUTE MYOCARDIAL INFARCTION [None]
  - ARTERIOSPASM CORONARY [None]
  - CARDIAC ARREST [None]
  - ISCHAEMIA [None]
  - VENTRICULAR FIBRILLATION [None]
